FAERS Safety Report 10193601 (Version 1)
Quarter: 2014Q2

REPORT INFORMATION
  Report Type: Spontaneous
  Country: US (occurrence: US)
  Receive Date: 20140524
  Receipt Date: 20140524
  Transmission Date: 20141212
  Serious: No
  Sender: FDA-Public Use
  Company Number: US-SA-2013SA125781

PATIENT
  Age: 38 Year
  Sex: Female
  Weight: 87.54 kg

DRUGS (2)
  1. LANTUS SOLOSTAR [Suspect]
     Indication: TYPE 2 DIABETES MELLITUS
     Dosage: PRODUCT STARTED 3-4 YEARS AGO. DOSE: 60-70 ONCE A DAY.
     Route: 058
  2. SOLOSTAR [Concomitant]
     Indication: TYPE 2 DIABETES MELLITUS
     Dosage: PRODUCT STARTED 3-4 YEARS AGO.

REACTIONS (3)
  - Blood glucose decreased [Unknown]
  - Drug dose omission [Unknown]
  - Weight decreased [Unknown]
